FAERS Safety Report 6615646-X (Version None)
Quarter: 2010Q1

REPORT INFORMATION
  Report Type: 
  Country: None (occurrence: None)
  Receive Date: 20100305
  Receipt Date: 20100208
  Transmission Date: 20100710
  Serious: Yes (Hospitalization)
  Sender: FDA-Public Use
  Company Number: KR-BAYER-201015017GPV

PATIENT
  Age: 54 Year
  Sex: Female
  Weight: 46 kg

DRUGS (2)
  1. SORAFENIB [Suspect]
     Indication: OVARIAN EPITHELIAL CANCER
     Dosage: TOTAL DAILY DOSE: 800 MG
     Route: 048
  2. TROLAC [Concomitant]
     Indication: PAIN
     Dates: start: 20100205, end: 20100205

REACTIONS (1)
  - FEMALE GENITAL TRACT FISTULA [None]
